FAERS Safety Report 6693567-4 (Version None)
Quarter: 2010Q2

REPORT INFORMATION
  Report Type: 
  Country: None (occurrence: None)
  Receive Date: 20100423
  Receipt Date: 20100413
  Transmission Date: 20101027
  Serious: No
  Sender: FDA-Public Use
  Company Number: US-BIOGENIDEC-2010BI012296

PATIENT
  Age: 31 Year
  Sex: Male

DRUGS (3)
  1. AVONEX [Suspect]
     Indication: MULTIPLE SCLEROSIS
     Route: 030
     Dates: start: 20090812, end: 20090930
  2. AVONEX [Suspect]
     Route: 030
     Dates: start: 20090930, end: 20091116
  3. AVONEX [Suspect]
     Route: 030
     Dates: start: 20091116

REACTIONS (4)
  - ALANINE AMINOTRANSFERASE INCREASED [None]
  - ASPARTATE AMINOTRANSFERASE INCREASED [None]
  - FEAR OF NEEDLES [None]
  - INJECTION SITE HAEMATOMA [None]
